FAERS Safety Report 9465595 (Version 2)
Quarter: 2013Q3

REPORT INFORMATION
  Report Type: Spontaneous
  Country: US (occurrence: US)
  Receive Date: 20130820
  Receipt Date: 20130905
  Transmission Date: 20140515
  Serious: Yes (Other)
  Sender: FDA-Public Use
  Company Number: US-JNJFOC-20130806544

PATIENT
  Age: 68 Year
  Sex: Female
  Weight: 46.72 kg

DRUGS (10)
  1. DURAGESIC [Suspect]
     Indication: PAIN
     Route: 062
  2. DURAGESIC [Suspect]
     Indication: PAIN
     Route: 062
     Dates: start: 1997
  3. DURAGESIC [Suspect]
     Indication: PAIN
     Route: 062
  4. DURAGESIC [Suspect]
     Indication: PAIN
     Route: 062
  5. DURAGESIC [Suspect]
     Indication: PAIN
     Route: 062
     Dates: start: 2001
  6. DURAGESIC [Suspect]
     Indication: PAIN
     Dosage: 100UG/HR + 25UG/HR
     Route: 062
  7. CALCIUM [Concomitant]
     Indication: BONE DISORDER
     Route: 048
  8. WELLBUTRIN [Concomitant]
     Indication: PAIN
     Route: 048
     Dates: start: 1995
  9. VITAMIN [Concomitant]
     Indication: BONE DISORDER
     Route: 048
  10. MIRALAX [Concomitant]
     Route: 048

REACTIONS (3)
  - Wrist fracture [Not Recovered/Not Resolved]
  - Fall [Recovered/Resolved]
  - Drug ineffective [Not Recovered/Not Resolved]
